FAERS Safety Report 8249073-9 (Version None)
Quarter: 2012Q2

REPORT INFORMATION
  Report Type: 
  Country: None (occurrence: None)
  Receive Date: 20120402
  Receipt Date: 20120329
  Transmission Date: 20120825
  Serious: No
  Sender: FDA-Public Use
  Company Number: US-PFIZER INC-2012081000

PATIENT
  Sex: Male
  Weight: 147 kg

DRUGS (1)
  1. VIAGRA [Suspect]
     Indication: PENIS DISORDER
     Dosage: 100 MG, 3X/DAY
     Route: 048
     Dates: start: 20090101

REACTIONS (3)
  - ERYTHEMA [None]
  - INCORRECT DOSE ADMINISTERED [None]
  - SKIN DISORDER [None]
